FAERS Safety Report 8142216-7 (Version None)
Quarter: 2012Q1

REPORT INFORMATION
  Report Type: 
  Country: None (occurrence: None)
  Receive Date: 20120216
  Receipt Date: 20120210
  Transmission Date: 20120608
  Serious: Yes (Life-Threatening, Hospitalization, Other)
  Sender: FDA-Public Use
  Company Number: PHHO2012AR002629

PATIENT
  Sex: Male
  Weight: 110 kg

DRUGS (4)
  1. ENALAPRIL MALEATE [Suspect]
     Dosage: UNK
     Route: 048
     Dates: start: 20110812, end: 20120208
  2. FUROSEMIDE [Suspect]
     Indication: CARDIAC FAILURE CONGESTIVE
     Dosage: 40 MG, BID
     Route: 048
     Dates: start: 20120127, end: 20120208
  3. BLINDED ALISKIREN [Suspect]
     Dosage: UNK
     Route: 048
     Dates: start: 20110812, end: 20120208
  4. BLINDED NO TREATMENT RECEIVED [Suspect]
     Dosage: UNK
     Route: 048
     Dates: start: 20110812, end: 20120208

REACTIONS (2)
  - RENAL FAILURE ACUTE [None]
  - HYPOTENSION [None]
